FAERS Safety Report 7795196-8 (Version None)
Quarter: 2011Q4

REPORT INFORMATION
  Report Type: 
  Country: None (occurrence: None)
  Receive Date: 20111004
  Receipt Date: 20110923
  Transmission Date: 20120403
  Serious: Yes (Other)
  Sender: FDA-Public Use
  Company Number: US-BAYER-2011-027546

PATIENT
  Age: 33 Year
  Sex: Female
  Weight: 131.52 kg

DRUGS (5)
  1. DROSPIRENONE AND ETHINYL ESTRADIOL [Suspect]
     Dosage: UNK
     Dates: start: 20090101, end: 20100101
  2. EXFORGE [Concomitant]
     Dosage: UNK
     Dates: start: 20090429, end: 20091214
  3. TANDEM CAPSULES [Concomitant]
     Dosage: UNK
     Dates: start: 20091103
  4. HYDROXYZINE [Concomitant]
     Dosage: 25 MG, UNK
     Dates: start: 20090926
  5. AZITHROMYCIN [Concomitant]
     Dosage: UNK
     Dates: start: 20090929

REACTIONS (10)
  - DEEP VEIN THROMBOSIS [None]
  - PAIN [None]
  - ANXIETY [None]
  - ANHEDONIA [None]
  - BLOOD PRESSURE ABNORMAL [None]
  - INJURY [None]
  - HEADACHE [None]
  - DYSPNOEA [None]
  - EMOTIONAL DISTRESS [None]
  - GENERAL PHYSICAL HEALTH DETERIORATION [None]
